FAERS Safety Report 7491922-6 (Version None)
Quarter: 2011Q1

REPORT INFORMATION
  Report Type: 
  Country: None (occurrence: None)
  Receive Date: 20110318
  Receipt Date: 20100702
  Transmission Date: 20110831
  Serious: Yes (Other)
  Sender: FDA-Public Use
  Company Number: 1-0710-48

PATIENT
  Age: 8 Year
  Sex: Female

DRUGS (4)
  1. AUGMENTIN (ANTIBIOTIC) [Concomitant]
  2. DERMA-SMOOTHE/FS [Suspect]
     Indication: ECZEMA
     Dosage: TOPICAL
     Route: 061
  3. SUMMER'S EVE (SHAMPOO) [Concomitant]
  4. JOHNSON'S BODY WASH [Concomitant]

REACTIONS (1)
  - URTICARIA [None]
